FAERS Safety Report 8251980-8 (Version None)
Quarter: 2012Q2

REPORT INFORMATION
  Report Type: 
  Country: None (occurrence: None)
  Receive Date: 20120402
  Receipt Date: 20120326
  Transmission Date: 20120825
  Serious: Yes (Hospitalization)
  Sender: FDA-Public Use
  Company Number: PHHY2012GB014892

PATIENT
  Age: 68 Year
  Sex: Female

DRUGS (4)
  1. ETHAMBUTOL HYDROCHLORIDE [Interacting]
     Indication: TUBERCULOSIS
     Route: 048
     Dates: start: 20120127, end: 20120129
  2. RIFAMPICIN [Suspect]
     Dates: start: 20120127, end: 20120129
  3. RIFAMPICIN [Interacting]
     Dates: start: 20120207
  4. ABIRATERONE ACETATE [Interacting]
     Indication: BREAST CANCER METASTATIC
     Dosage: 100 MG, QD
     Route: 048
     Dates: start: 20111130, end: 20120202

REACTIONS (5)
  - CONFUSIONAL STATE [None]
  - MUSCULAR WEAKNESS [None]
  - COORDINATION ABNORMAL [None]
  - DYSPNOEA [None]
  - DRUG INTERACTION [None]
